FAERS Safety Report 6842198-1 (Version None)
Quarter: 2010Q3

REPORT INFORMATION
  Report Type: 
  Country: None (occurrence: None)
  Receive Date: 20100714
  Receipt Date: 20070723
  Transmission Date: 20110219
  Serious: Yes (Other)
  Sender: FDA-Public Use
  Company Number: US-PFIZER INC-2007062306

PATIENT
  Sex: Female
  Weight: 46.7 kg

DRUGS (5)
  1. CHANTIX [Suspect]
     Indication: SMOKING CESSATION THERAPY
     Dates: start: 20070501, end: 20070101
  2. EFFEXOR [Suspect]
     Indication: DEPRESSION
     Dates: start: 20070501, end: 20070101
  3. LEVOXYL [Concomitant]
  4. ZOCOR [Concomitant]
  5. ALTACE [Concomitant]

REACTIONS (4)
  - ASTHENIA [None]
  - DEPRESSION [None]
  - MALAISE [None]
  - VERTIGO [None]
